FAERS Safety Report 9930787 (Version 1)
Quarter: 2014Q1

REPORT INFORMATION
  Report Type: Spontaneous
  Country: US (occurrence: US)
  Receive Date: 20140227
  Receipt Date: 20140227
  Transmission Date: 20141002
  Serious: No
  Sender: FDA-Public Use
  Company Number: US-AMGEN-USASP2014002609

PATIENT
  Age: 56 Year
  Sex: Female
  Weight: 60.8 kg

DRUGS (15)
  1. ENBREL [Suspect]
     Indication: ILL-DEFINED DISORDER
     Dosage: 50 MG, QWK
     Route: 058
     Dates: start: 201301
  2. VITAMIN D                          /00107901/ [Concomitant]
     Dosage: UNK
  3. OMEPRAZOLE [Concomitant]
     Dosage: UNK
  4. NASACOR AQ [Concomitant]
     Dosage: UNK
  5. LIPITOR [Concomitant]
     Dosage: UNK
  6. HYDROXYZINE HCL [Concomitant]
     Dosage: UNK
  7. GINKGO BILOBA [Concomitant]
     Dosage: UNK
  8. GABAPENTIN [Concomitant]
     Dosage: UNK
  9. FOLIC ACID [Concomitant]
     Dosage: UNK
  10. FISH OIL [Concomitant]
     Dosage: UNK
  11. BLACK COHOSH                       /01456801/ [Concomitant]
     Dosage: UNK
  12. ASPIRIN (E.C.) [Concomitant]
     Dosage: UNK
  13. ALENDRONATE SODIUM [Concomitant]
     Dosage: UNK
  14. DICLOFENAC SODIUM [Concomitant]
     Dosage: UNK
  15. ORPHENADRINE CITRATE [Concomitant]
     Dosage: UNK

REACTIONS (3)
  - Fatigue [Unknown]
  - Upper respiratory tract infection [Unknown]
  - Nasopharyngitis [Unknown]
